FAERS Safety Report 9161610 (Version 2)
Quarter: 2013Q1

REPORT INFORMATION
  Report Type: Spontaneous
  Country: JP (occurrence: JP)
  Receive Date: 20130313
  Receipt Date: 20130329
  Transmission Date: 20140127
  Serious: Yes (Other)
  Sender: FDA-Public Use
  Company Number: JP-009507513-1303JPN005096

PATIENT
  Age: 81 Year
  Sex: Male

DRUGS (2)
  1. DEXAMETHASONE [Suspect]
     Indication: PROSTATE CANCER
     Dosage: UNK
     Route: 048
  2. TEGAFUR (+) URACIL [Concomitant]
     Indication: PROSTATE CANCER
     Route: 048

REACTIONS (1)
  - Meningitis cryptococcal [Unknown]
